FAERS Safety Report 16192088 (Version 1)
Quarter: 2019Q2

REPORT INFORMATION
  Report Type: Spontaneous
  Country: US (occurrence: US)
  Receive Date: 20190412
  Receipt Date: 20190412
  Transmission Date: 20190711
  Serious: No
  Sender: FDA-Public Use
  Company Number: US-TEVA-2019-US-1035742

PATIENT
  Sex: Female

DRUGS (1)
  1. BUPRENORPHINE, 20MCG/HR TEVA [Suspect]
     Active Substance: BUPRENORPHINE
     Dosage: 20 MCG/HR

REACTIONS (4)
  - Pain [Unknown]
  - Product physical issue [Unknown]
  - Product substitution issue [Unknown]
  - Product adhesion issue [Unknown]
